FAERS Safety Report 8213766-X (Version None)
Quarter: 2012Q1

REPORT INFORMATION
  Report Type: 
  Country: None (occurrence: None)
  Receive Date: 20120316
  Receipt Date: 20120314
  Transmission Date: 20120608
  Serious: Yes (Death, Life-Threatening, Hospitalization, Other)
  Sender: FDA-Public Use
  Company Number: PHHY2011NL109687

PATIENT
  Sex: Male

DRUGS (15)
  1. ZOMETA [Suspect]
     Indication: METASTASES TO BONE
     Dosage: 4 MG/5 ML, 1X PER 28 DAYS
     Dates: start: 20111123
  2. DEXAMETHASONE SODIUM PHOSPHATE [Concomitant]
     Dosage: UNK UKN, UNK
     Route: 065
  3. SUTENT [Concomitant]
     Dosage: UNK UKN, UNK
     Route: 065
  4. OXYCONTIN [Concomitant]
     Dosage: UNK UKN, UNK
     Route: 065
  5. FENTANYL [Concomitant]
     Dosage: UNK UKN, UNK
     Route: 065
  6. METHADONE HCL [Concomitant]
     Dosage: UNK UKN, UNK
     Route: 065
  7. DICLOFENAC SODIUM [Concomitant]
     Dosage: UNK UKN, UNK
     Route: 065
  8. OXYBUTYNIN [Concomitant]
  9. PAROXETINE HCL [Concomitant]
     Dosage: UNK UKN, UNK
     Route: 065
  10. TEMAZEPAM [Concomitant]
     Dosage: UNK UKN, UNK
     Route: 065
  11. MOLEXOL [Concomitant]
     Dosage: UNK UKN, UNK
     Route: 065
  12. INSTANYL [Concomitant]
     Dosage: UNK UKN, UNK
     Route: 065
  13. ACETAMINOPHEN [Concomitant]
     Dosage: UNK UKN, UNK
     Route: 065
  14. OMEPRAZOLE [Concomitant]
  15. METOCLOPRAMIDE [Concomitant]
     Dosage: UNK UKN, UNK
     Route: 065

REACTIONS (9)
  - PARALYSIS [None]
  - CERVICAL VERTEBRAL FRACTURE [None]
  - NEOPLASM MALIGNANT [None]
  - GENERAL PHYSICAL HEALTH DETERIORATION [None]
  - MUSCULAR WEAKNESS [None]
  - NEOPLASM PROGRESSION [None]
  - DEATH [None]
  - DRUG INEFFECTIVE [None]
  - TERMINAL STATE [None]
